FAERS Safety Report 12209110 (Version 3)
Quarter: 2016Q2

REPORT INFORMATION
  Report Type: Spontaneous
  Country: DE (occurrence: DE)
  Receive Date: 20160324
  Receipt Date: 20160401
  Transmission Date: 20160815
  Serious: Yes (Life-Threatening, Hospitalization, Other)
  Sender: FDA-Public Use
  Company Number: DE-ABBVIE-16K-062-1589815-00

PATIENT
  Age: 60 Year
  Sex: Male
  Weight: 80 kg

DRUGS (2)
  1. HUMIRA [Suspect]
     Active Substance: ADALIMUMAB
     Indication: PSORIASIS
     Route: 058
     Dates: start: 201208, end: 201602
  2. HUMIRA [Suspect]
     Active Substance: ADALIMUMAB
     Indication: PSORIATIC ARTHROPATHY

REACTIONS (15)
  - Splenomegaly [Unknown]
  - Mantle cell lymphoma [Not Recovered/Not Resolved]
  - Infection [Not Recovered/Not Resolved]
  - Tachycardia [Unknown]
  - Thrombocytopenia [Unknown]
  - Nosocomial infection [Unknown]
  - Vertigo [Unknown]
  - Cough [Unknown]
  - Splenic infarction [Unknown]
  - Lymphadenopathy [Unknown]
  - Renal cyst [Unknown]
  - Hepatic cyst [Unknown]
  - Antinuclear antibody increased [Unknown]
  - Lymphadenopathy [Recovering/Resolving]
  - Night sweats [Unknown]

NARRATIVE: CASE EVENT DATE: 201512
